FAERS Safety Report 17064668 (Version 1)
Quarter: 2019Q4

REPORT INFORMATION
  Report Type: Spontaneous
  Country: US (occurrence: US)
  Receive Date: 20191023
  Receipt Date: 20191023
  Transmission Date: 20200122
  Serious: No
  Sender: FDA-Public Use
  Company Number: None

PATIENT
  Age: 25 Year
  Sex: Male
  Weight: 80.1 kg

DRUGS (6)
  1. DAUNOROBICIN [Suspect]
     Active Substance: DAUNORUBICIN
     Dates: end: 20150306
  2. CYTARABINE. [Suspect]
     Active Substance: CYTARABINE
     Dates: end: 20150904
  3. ONCASPAR [Suspect]
     Active Substance: PEGASPARGASE
     Dates: end: 20150508
  4. PREDNISONE. [Suspect]
     Active Substance: PREDNISONE
     Dates: end: 20180515
  5. METHOTREXATE. [Suspect]
     Active Substance: METHOTREXATE
     Dates: end: 20180523
  6. VINCRISTINE SULFATE. [Suspect]
     Active Substance: VINCRISTINE SULFATE
     Dates: end: 20180511

REACTIONS (1)
  - Chronic myeloid leukaemia [None]

NARRATIVE: CASE EVENT DATE: 20191011
